FAERS Safety Report 7631287-X (Version None)
Quarter: 2011Q3

REPORT INFORMATION
  Report Type: 
  Country: None (occurrence: None)
  Receive Date: 20110715
  Receipt Date: 20110701
  Transmission Date: 20111222
  Serious: Yes (Hospitalization)
  Sender: FDA-Public Use
  Company Number: TPA2011A03695

PATIENT
  Age: 76 Year
  Sex: Female

DRUGS (5)
  1. EDARBI [Suspect]
     Indication: HYPERTENSION
     Dosage: 40 MG, 1 IN 1 D, PER ORAL
     Route: 048
     Dates: start: 20110101, end: 20110101
  2. FUROSEMIDE [Concomitant]
  3. SPIRONOLACTONE [Concomitant]
  4. GLUCOPHAGE [Concomitant]
  5. BYSTOLIC [Concomitant]

REACTIONS (2)
  - BLOOD PRESSURE INCREASED [None]
  - HYPONATRAEMIA [None]
